FAERS Safety Report 4506612-9 (Version None)
Quarter: 2004Q4

REPORT INFORMATION
  Report Type: 
  Country: None (occurrence: None)
  Receive Date: 20041122
  Receipt Date: 20031219
  Transmission Date: 20050328
  Serious: Yes (Other)
  Sender: FDA-Public Use
  Company Number: JP-BRISTOL-MYERS SQUIBB COMPANY-12466439

PATIENT
  Age: 38 Year
  Sex: Male

DRUGS (6)
  1. EFAVIRENZ CAPS [Suspect]
     Indication: HIV INFECTION
     Route: 048
     Dates: start: 20000919
  2. STAVUDINE CAPS [Suspect]
     Indication: HIV INFECTION
     Route: 048
     Dates: start: 19981120, end: 20021214
  3. LAMIVUDINE [Suspect]
     Indication: HIV INFECTION
     Route: 048
     Dates: start: 19981120, end: 20030331
  4. ABACAVIR SULFATE [Suspect]
     Indication: HIV INFECTION
     Route: 048
     Dates: start: 20000125, end: 20030331
  5. BEZAFIBRATE [Suspect]
     Route: 048
     Dates: start: 20010404, end: 20021110
  6. SULFAMETHOXAZOLE + TRIMETHOPRIM [Concomitant]
     Dates: end: 20020727

REACTIONS (2)
  - HYPERTRIGLYCERIDAEMIA [None]
  - RHABDOMYOLYSIS [None]
